FAERS Safety Report 5027015-7 (Version None)
Quarter: 2006Q2

REPORT INFORMATION
  Report Type: 
  Country: None (occurrence: None)
  Receive Date: 20060615
  Receipt Date: 20060606
  Transmission Date: 20061013
  Serious: Yes (Hospitalization)
  Sender: FDA-Public Use
  Company Number: US-BRISTOL-MYERS SQUIBB COMPANY-13402383

PATIENT
  Age: 70 Year
  Sex: Female
  Weight: 59 kg

DRUGS (14)
  1. BARACLUDE [Suspect]
     Indication: HEPATITIS B
     Dates: start: 20060201
  2. SPIRONOLACTONE [Concomitant]
     Dates: start: 20060201
  3. LACTULOSE [Concomitant]
  4. CLORATHROMYCIN [Concomitant]
  5. RIFABUTIN [Concomitant]
  6. ETHAMBUTOL HYDROCHLORIDE [Concomitant]
  7. SUCRALFATE [Concomitant]
  8. RIFAXIMIN [Concomitant]
  9. PROPRANOLOL [Concomitant]
  10. PANTOPRAZOLE [Concomitant]
  11. WARFARIN SODIUM [Concomitant]
  12. MULTI-VITAMIN [Concomitant]
  13. MAGNESIUM CHLORIDE [Concomitant]
  14. FUROSEMIDE [Concomitant]
     Dosage: FUROSEMIDE 20 TO 40 MG AS NEEDED

REACTIONS (1)
  - HYPOGLYCAEMIA [None]
